FAERS Safety Report 17797259 (Version 1)
Quarter: 2020Q2

REPORT INFORMATION
  Report Type: Spontaneous
  Country: US (occurrence: US)
  Receive Date: 20200515
  Receipt Date: 20200515
  Transmission Date: 20200714
  Serious: Yes (Hospitalization)
  Sender: FDA-Public Use
  Company Number: None

PATIENT
  Age: 73 Year
  Sex: Female
  Weight: 45.8 kg

DRUGS (7)
  1. TRAMADOL. [Concomitant]
     Active Substance: TRAMADOL
  2. OXYCODONE [Concomitant]
     Active Substance: OXYCODONE
  3. ROSUVASTATIN. [Concomitant]
     Active Substance: ROSUVASTATIN
  4. APIXABAN [Concomitant]
     Active Substance: APIXABAN
  5. ALPELISIB [Suspect]
     Active Substance: ALPELISIB
     Route: 048
     Dates: start: 20191008, end: 20200430
  6. METOPROLOL. [Concomitant]
     Active Substance: METOPROLOL
  7. PREVACID [Concomitant]
     Active Substance: LANSOPRAZOLE

REACTIONS (3)
  - Diarrhoea [None]
  - Colitis [None]
  - Muscle spasms [None]

NARRATIVE: CASE EVENT DATE: 20200505
